FAERS Safety Report 6738051-4 (Version None)
Quarter: 2010Q2

REPORT INFORMATION
  Report Type: 
  Country: None (occurrence: None)
  Receive Date: 20100524
  Receipt Date: 20100512
  Transmission Date: 20101027
  Serious: Yes (Death)
  Sender: FDA-Public Use
  Company Number: DE-ROCHE-563505

PATIENT
  Age: 71 Year
  Sex: Female
  Weight: 78 kg

DRUGS (3)
  1. CAPECITABINE [Suspect]
     Dosage: FREQUENCY: D1-D4/Q3W
     Route: 065
     Dates: start: 20070130, end: 20070419
  2. DOXORUBICIN HCL [Suspect]
     Route: 065
     Dates: start: 20070521
  3. DOXORUBICIN HCL [Suspect]
     Route: 065
     Dates: start: 20090122, end: 20090416

REACTIONS (1)
  - MALIGNANT NEOPLASM PROGRESSION [None]
